FAERS Safety Report 8947924 (Version 2)
Quarter: 2013Q1

REPORT INFORMATION
  Report Type: Spontaneous
  Country: US (occurrence: None)
  Receive Date: 20121127
  Receipt Date: 20130129
  Transmission Date: 20140127
  Serious: Yes (Hospitalization, Other)
  Sender: FDA-Public Use
  Company Number: 2012AP003992

PATIENT
  Sex: Female

DRUGS (4)
  1. TRIAMTERENE AND HYDROCHLOROTHIAZIDE [Suspect]
     Indication: BLOOD PRESSURE ABNORMAL
  2. LYRICA [Suspect]
     Indication: PAIN
     Route: 048
     Dates: start: 2007
  3. LYRICA [Suspect]
     Indication: NEUROPATHY PERIPHERAL
     Route: 048
     Dates: start: 2007
  4. LYRICA [Suspect]
     Indication: NECK PAIN
     Route: 048
     Dates: start: 2007

REACTIONS (9)
  - Herpes zoster [None]
  - Fibromyalgia [None]
  - Arthralgia [None]
  - Plantar fasciitis [None]
  - Arrhythmia [None]
  - Blood sodium decreased [None]
  - Blood potassium decreased [None]
  - Constipation [None]
  - Pain [None]
